FAERS Safety Report 11717011 (Version 1)
Quarter: 2015Q4

REPORT INFORMATION
  Report Type: Spontaneous
  Country: US (occurrence: US)
  Receive Date: 20151109
  Receipt Date: 20151109
  Transmission Date: 20160304
  Serious: Yes (Other)
  Sender: FDA-Public Use
  Company Number: US-BAYER-2015-457086

PATIENT
  Age: 57 Year
  Sex: Female
  Weight: 87.53 kg

DRUGS (2)
  1. INSULIN [Concomitant]
     Active Substance: INSULIN NOS
  2. RID 1-2-3 SYSTEM [Suspect]
     Active Substance: PIPERONYL BUTOXIDE\PYRETHRUM EXTRACT
     Indication: LICE INFESTATION
     Dosage: UNK UNK, QD
     Dates: end: 20151028

REACTIONS (5)
  - Product use issue [None]
  - Product use issue [None]
  - Cardiac disorder [None]
  - Hair disorder [None]
  - Alopecia [None]

NARRATIVE: CASE EVENT DATE: 2014
